FAERS Safety Report 10191247 (Version 1)
Quarter: 2014Q2

REPORT INFORMATION
  Report Type: Spontaneous
  Country: US (occurrence: None)
  Receive Date: 20140522
  Receipt Date: 20140522
  Transmission Date: 20141212
  Serious: Yes (Other)
  Sender: FDA-Public Use
  Company Number: None

PATIENT
  Age: 39 Year
  Sex: Female

DRUGS (1)
  1. SOLUMEDROL 125MG NOVOPLUS [Suspect]
     Indication: ARTHRALGIA
     Route: 030
     Dates: start: 20140507, end: 20140516

REACTIONS (4)
  - Vomiting [None]
  - Headache [None]
  - Back pain [None]
  - Product lot number issue [None]
